FAERS Safety Report 13240186 (Version 5)
Quarter: 2017Q3

REPORT INFORMATION
  Report Type: Report from Study
  Country: US (occurrence: US)
  Receive Date: 20170216
  Receipt Date: 20170802
  Transmission Date: 20171127
  Serious: Yes (Hospitalization)
  Sender: FDA-Public Use
  Company Number: US-PFIZER INC-2017016743

PATIENT
  Age: 31 Year
  Sex: Female

DRUGS (1)
  1. IBRANCE [Suspect]
     Active Substance: PALBOCICLIB
     Indication: BREAST CANCER
     Dosage: 125 MG, CYCLIC (ONCE DAILY FOR 21 DAYS IN A ROW, FOLLOWED BY 7 DAYS OFF EVERY 28 DAYS)
     Route: 048
     Dates: start: 20170111

REACTIONS (24)
  - Contusion [Unknown]
  - Hepatic enzyme increased [Recovering/Resolving]
  - Nasal congestion [Unknown]
  - Bone pain [Recovered/Resolved]
  - Fatigue [Recovered/Resolved]
  - Pyrexia [Unknown]
  - Oropharyngeal pain [Unknown]
  - White blood cell count decreased [Recovered/Resolved]
  - Arthralgia [Unknown]
  - Dehydration [Unknown]
  - Nausea [Recovered/Resolved]
  - Nasopharyngitis [Unknown]
  - Platelet count decreased [Unknown]
  - Musculoskeletal stiffness [Unknown]
  - Intervertebral disc protrusion [Unknown]
  - Condition aggravated [Recovered/Resolved]
  - Diarrhoea [Recovered/Resolved]
  - Decreased appetite [Recovered/Resolved]
  - Cough [Unknown]
  - Full blood count decreased [Recovering/Resolving]
  - Bronchitis [Unknown]
  - Pain [Unknown]
  - Headache [Unknown]
  - Back pain [Recovered/Resolved]

NARRATIVE: CASE EVENT DATE: 2017
